FAERS Safety Report 7042487-4 (Version None)
Quarter: 2010Q4

REPORT INFORMATION
  Report Type: 
  Country: None (occurrence: None)
  Receive Date: 20101013
  Receipt Date: 20100218
  Transmission Date: 20110411
  Serious: No
  Sender: FDA-Public Use
  Company Number: US-ASTRAZENECA-2010SE07243

PATIENT
  Age: 58 Year
  Sex: Male
  Weight: 90.7 kg

DRUGS (5)
  1. SYMBICORT [Suspect]
     Indication: ASTHMA
     Dosage: 320/9 UG 1 PUFF TWICE A DAY
     Route: 055
     Dates: start: 20091101, end: 20100118
  2. DILANTIN [Concomitant]
  3. PAXIL [Concomitant]
  4. ZYAC [Concomitant]
     Indication: CARDIAC DISORDER
  5. XANAX [Concomitant]

REACTIONS (2)
  - DYSPNOEA [None]
  - SALVAGE THERAPY [None]
